FAERS Safety Report 9023585 (Version 3)
Quarter: 2016Q1

REPORT INFORMATION
  Report Type: Spontaneous
  Country: JP (occurrence: JP)
  Receive Date: 20130121
  Receipt Date: 20160113
  Transmission Date: 20160526
  Serious: Yes (Hospitalization)
  Sender: FDA-Public Use
  Company Number: JP-NOVOPROD-368922

PATIENT
  Age: 75 Year
  Sex: Male
  Weight: 41 kg

DRUGS (4)
  1. NOVORAPID [Concomitant]
     Active Substance: INSULIN ASPART
     Indication: TYPE 2 DIABETES MELLITUS
     Dosage: 20 U, QD (10, 6 AND 4 UNITS IN THE MORNING, NOON AND EVENING)
     Route: 058
     Dates: start: 200901, end: 200904
  2. NOVOLIN [Suspect]
     Active Substance: INSULIN HUMAN
     Indication: TYPE 2 DIABETES MELLITUS
     Dosage: 38 IU, QD (24 AND 14 UNITS IN THE MORNING AND EVENING)
     Route: 058
     Dates: start: 200610, end: 200801
  3. NOVORAPID [Suspect]
     Active Substance: INSULIN ASPART
     Indication: TYPE 2 DIABETES MELLITUS
     Dosage: 42 IU, QD (36 AND 6 UNITS IN THE MORNING AND EVENING)
     Route: 058
     Dates: start: 200801, end: 200901
  4. NOVOLIN N [Concomitant]
     Active Substance: INSULIN HUMAN
     Indication: TYPE 2 DIABETES MELLITUS
     Dosage: 8 U, QD (AT BED TIME)
     Route: 058
     Dates: start: 200901, end: 200904

REACTIONS (2)
  - Anti-insulin antibody [Recovering/Resolving]
  - Blood glucose fluctuation [Recovered/Resolved]

NARRATIVE: CASE EVENT DATE: 200610
